FAERS Safety Report 6714365-9 (Version None)
Quarter: 2010Q2

REPORT INFORMATION
  Report Type: 
  Country: None (occurrence: None)
  Receive Date: 20100506
  Receipt Date: 20100421
  Transmission Date: 20101027
  Serious: Yes (Other)
  Sender: FDA-Public Use
  Company Number: JP-ABBOTT-10P-087-0642513-00

PATIENT
  Age: 10 Year
  Sex: Female
  Weight: 12.6 kg

DRUGS (6)
  1. SEVOFLURANE [Suspect]
     Indication: INDUCTION AND MAINTENANCE OF ANAESTHESIA
     Route: 055
  2. NITROUS OXIDE [Concomitant]
     Indication: INDUCTION AND MAINTENANCE OF ANAESTHESIA
     Route: 055
  3. OXYGEN [Concomitant]
     Indication: INDUCTION AND MAINTENANCE OF ANAESTHESIA
     Route: 055
  4. DIURETIC AGENTS [Concomitant]
     Indication: DRUG THERAPY
  5. INOTROPIC AGENTS [Concomitant]
     Indication: DRUG THERAPY
  6. VASODEPRESSORS [Concomitant]
     Indication: DRUG THERAPY

REACTIONS (2)
  - ATRIOVENTRICULAR BLOCK COMPLETE [None]
  - CARDIOVASCULAR INSUFFICIENCY [None]
